FAERS Safety Report 18843173 (Version 1)
Quarter: 2021Q1

REPORT INFORMATION
  Report Type: Spontaneous
  Country: US (occurrence: US)
  Receive Date: 20210203
  Receipt Date: 20210203
  Transmission Date: 20210419
  Serious: Yes (Hospitalization)
  Sender: FDA-Public Use
  Company Number: US-FRESENIUS MEDICAL CARE RENAL THERAPIES GROUP-FMC-2102-000145

PATIENT
  Age: 67 Year
  Sex: Female
  Weight: 101 kg

DRUGS (1)
  1. DELFLEX WITH DEXTROSE 2.5% LOW MAGNESIUM LOW CALCIUM [Suspect]
     Active Substance: CALCIUM CHLORIDE\DEXTROSE\MAGNESIUM CHLORIDE\SODIUM CHLORIDE\SODIUM LACTATE
     Indication: END STAGE RENAL DISEASE
     Dosage: 1800 ML FOR THE FIRST CYCLE, 1500 ML FOR 3 CYCLES WITH A LAST FILL OF 100 ML AND NO DAYTIME EXCHANGE
     Route: 033

REACTIONS (1)
  - Hernia [Recovered/Resolved]
